FAERS Safety Report 9314923 (Version 2)
Quarter: 2013Q2

REPORT INFORMATION
  Report Type: Spontaneous
  Country: US (occurrence: US)
  Receive Date: 20130529
  Receipt Date: 20130606
  Transmission Date: 20140414
  Serious: Yes (Death, Hospitalization)
  Sender: FDA-Public Use
  Company Number: US-BAXTER-2013BAX019264

PATIENT
  Age: 76 Year
  Sex: Female

DRUGS (3)
  1. DIANEAL LOW CALCIUM [Suspect]
     Indication: PERITONEAL DIALYSIS
     Route: 033
     Dates: start: 20100921, end: 20130519
  2. DIANEAL LOW CALCIUM [Suspect]
     Dosage: LAST FILL
     Route: 033
     Dates: start: 20100921, end: 20130519
  3. DIANEAL LOW CALCIUM (ULTRABAG) [Suspect]
     Indication: PERITONEAL DIALYSIS
     Route: 033
     Dates: start: 20100921, end: 20130519

REACTIONS (2)
  - Cardiac failure congestive [Fatal]
  - Respiratory failure [Fatal]
